FAERS Safety Report 7879810-4 (Version None)
Quarter: 2011Q4

REPORT INFORMATION
  Report Type: 
  Country: None (occurrence: None)
  Receive Date: 20111101
  Receipt Date: 20100712
  Transmission Date: 20120403
  Serious: No
  Sender: FDA-Public Use
  Company Number: US-BAYER-201022790NA

PATIENT
  Sex: Male

DRUGS (1)
  1. AVELOX [Suspect]
     Indication: SINUSITIS
     Dosage: 2 DF, UNK
     Dates: start: 20100501

REACTIONS (16)
  - HEART RATE INCREASED [None]
  - TENDONITIS [None]
  - DISTURBANCE IN ATTENTION [None]
  - FEELING JITTERY [None]
  - TENDON PAIN [None]
  - PAIN IN EXTREMITY [None]
  - ANXIETY [None]
  - ROTATOR CUFF SYNDROME [None]
  - TENDON DISORDER [None]
  - JOINT CREPITATION [None]
  - PAIN [None]
  - MYALGIA [None]
  - BLOOD PRESSURE INCREASED [None]
  - PARAESTHESIA [None]
  - MUSCLE SPASMS [None]
  - UNEVALUABLE EVENT [None]
